FAERS Safety Report 17268245 (Version 2)
Quarter: 2020Q1

REPORT INFORMATION
  Report Type: Spontaneous
  Country: JP (occurrence: JP)
  Receive Date: 20200114
  Receipt Date: 20200131
  Transmission Date: 20200409
  Serious: Yes (Other)
  Sender: FDA-Public Use
  Company Number: JP-BRACCO-2020JP00123

PATIENT
  Age: 28 Year
  Sex: Male

DRUGS (1)
  1. OYPALOMIN [Suspect]
     Active Substance: IOPAMIDOL
     Dosage: 140 ML, SINGLE
     Route: 013

REACTIONS (1)
  - Contrast encephalopathy [Unknown]
